FAERS Safety Report 12234340 (Version 3)
Quarter: 2019Q3

REPORT INFORMATION
  Report Type: Spontaneous
  Country: CA (occurrence: CA)
  Receive Date: 20160404
  Receipt Date: 20190722
  Transmission Date: 20191004
  Serious: Yes (Death, Hospitalization, Other)
  Sender: FDA-Public Use
  Company Number: CA-PFIZER INC-2016181647

PATIENT
  Age: 58 Year
  Sex: Male

DRUGS (5)
  1. FRAGMIN [Suspect]
     Active Substance: DALTEPARIN SODIUM
     Indication: THROMBOSIS PROPHYLAXIS
     Dosage: 15000 IU, UNK
     Dates: start: 20160215
  2. FRAGMIN [Suspect]
     Active Substance: DALTEPARIN SODIUM
     Dosage: 14000 IU, UNK
     Dates: start: 20160218
  3. PMS-METOPROLOL-L [Concomitant]
     Indication: CARDIOVASCULAR DISORDER
     Dosage: 25 MG, UNK
  4. FRAGMIN [Suspect]
     Active Substance: DALTEPARIN SODIUM
     Dosage: 18000 IU, UNK
     Dates: start: 20160303
  5. COVERSYL /00790702/ [Concomitant]
     Active Substance: PERINDOPRIL
     Indication: CARDIOVASCULAR DISORDER
     Dosage: 4 MG, UNK

REACTIONS (9)
  - Paralysis [Not Recovered/Not Resolved]
  - Drug ineffective [Unknown]
  - Vomiting [Not Recovered/Not Resolved]
  - Restlessness [Not Recovered/Not Resolved]
  - Seizure [Not Recovered/Not Resolved]
  - Cerebrovascular accident [Fatal]
  - Hypoaesthesia [Unknown]
  - Pulmonary thrombosis [Unknown]
  - Back pain [Not Recovered/Not Resolved]

NARRATIVE: CASE EVENT DATE: 20160216
